FAERS Safety Report 10261147 (Version 1)
Quarter: 2014Q2

REPORT INFORMATION
  Report Type: Spontaneous
  Country: US (occurrence: US)
  Receive Date: 20140626
  Receipt Date: 20140626
  Transmission Date: 20141212
  Serious: No
  Sender: FDA-Public Use
  Company Number: US-BAYER-2014-096022

PATIENT
  Age: 88 Year
  Sex: Female

DRUGS (6)
  1. ALEVE CAPLET [Suspect]
     Indication: ANALGESIC THERAPY
     Dosage: 1 DF, ONCE
     Route: 048
     Dates: start: 20140625, end: 20140625
  2. ALEVE CAPLET [Suspect]
     Indication: INFLAMMATION
  3. FISH OIL [Concomitant]
  4. METOPROLOL [Concomitant]
  5. BAYER ASPIRIN SUGAR FREE LOW DOSE ENTERIC [Concomitant]
  6. MULTIVITAMIN [Concomitant]

REACTIONS (3)
  - Drug ineffective [None]
  - Expired product administered [None]
  - Medication error [None]
